FAERS Safety Report 8209176-1 (Version None)
Quarter: 2012Q1

REPORT INFORMATION
  Report Type: 
  Country: None (occurrence: None)
  Receive Date: 20120314
  Receipt Date: 20120307
  Transmission Date: 20120608
  Serious: Yes (Hospitalization)
  Sender: FDA-Public Use
  Company Number: US-BAYER-2012-001199

PATIENT
  Age: 43 Year
  Sex: Female
  Weight: 75 kg

DRUGS (4)
  1. YAZ [Suspect]
     Dosage: UNK
     Dates: start: 20071116, end: 20081103
  2. LEVOTHYROXINE SODIUM [Concomitant]
     Dosage: 100 ?G, UNK
     Route: 048
     Dates: start: 20090925
  3. CYANOCOBALAMIN [Concomitant]
     Dosage: 1000 MCG/ML, UNK
     Route: 048
     Dates: start: 20091214
  4. YAZ [Suspect]
     Dosage: UNK
     Dates: start: 20090805, end: 20100101

REACTIONS (9)
  - EMOTIONAL DISTRESS [None]
  - VENOUS INSUFFICIENCY [None]
  - OEDEMA PERIPHERAL [None]
  - DEPRESSION [None]
  - PAIN IN EXTREMITY [None]
  - INJURY [None]
  - NERVOUSNESS [None]
  - FEAR OF DEATH [None]
  - DEEP VEIN THROMBOSIS [None]
